FAERS Safety Report 24624139 (Version 1)
Quarter: 2024Q4

REPORT INFORMATION
  Report Type: Spontaneous
  Country: US (occurrence: None)
  Receive Date: 20241115
  Receipt Date: 20241115
  Transmission Date: 20250115
  Serious: Yes (Hospitalization)
  Sender: Public
  Company Number: None

PATIENT
  Age: 54 Year
  Sex: Male

DRUGS (1)
  1. SEMAGLUTIDE [Suspect]
     Active Substance: SEMAGLUTIDE
     Dosage: 1.00 MG QWEEK SUBCUTANEOUS?
     Route: 058

REACTIONS (3)
  - Diarrhoea [None]
  - Hyponatraemia [None]
  - Gastroenteritis [None]

NARRATIVE: CASE EVENT DATE: 20240625
